FAERS Safety Report 6406397-5 (Version None)
Quarter: 2009Q4

REPORT INFORMATION
  Report Type: 
  Country: None (occurrence: None)
  Receive Date: 20091019
  Receipt Date: 20091007
  Transmission Date: 20100525
  Serious: Yes (Other)
  Sender: FDA-Public Use
  Company Number: FR-AMGEN-US256670

PATIENT
  Age: 70 Year
  Sex: Female

DRUGS (3)
  1. ENBREL [Suspect]
     Indication: RHEUMATOID ARTHRITIS
     Dosage: UNKNOWN
     Route: 058
  2. LEFLUNOMIDE [Concomitant]
     Dosage: UNKNOWN
     Route: 048
  3. CORTICOSTEROIDS [Concomitant]
     Route: 065

REACTIONS (1)
  - PULMONARY GRANULOMA [None]
